FAERS Safety Report 8834330 (Version 1)
Quarter: 2012Q4

REPORT INFORMATION
  Report Type: 
  Country: US (occurrence: US)
  Receive Date: 20121010
  Receipt Date: 20121010
  Transmission Date: 20130627
  Serious: Yes (Other)
  Sender: FDA-Public Use
  Company Number: US-PFIZER INC-2012246576

PATIENT
  Age: 58 Year
  Sex: Female
  Weight: 72.56 kg

DRUGS (4)
  1. PREMPRO [Suspect]
     Indication: HOT FLUSH
     Dosage: 0.625 mg, 1x/day
     Route: 048
     Dates: start: 201103, end: 201201
  2. PREMPRO [Suspect]
     Dosage: 0.45 mg, 1x/day
     Route: 048
     Dates: start: 201201
  3. PREMPRO [Suspect]
     Dosage: UNK
     Route: 048
  4. HYDROCODONE [Concomitant]
     Indication: BACK DISORDER
     Dosage: UNK
     Dates: start: 2010

REACTIONS (2)
  - Back disorder [Unknown]
  - Alopecia [Not Recovered/Not Resolved]
